FAERS Safety Report 7347711-6 (Version None)
Quarter: 2011Q1

REPORT INFORMATION
  Report Type: 
  Country: None (occurrence: None)
  Receive Date: 20110311
  Receipt Date: 20110307
  Transmission Date: 20110831
  Serious: Yes (Hospitalization)
  Sender: FDA-Public Use
  Company Number: B0704248A

PATIENT
  Age: 74 Year
  Sex: Female

DRUGS (6)
  1. ATARAX [Concomitant]
     Route: 065
  2. BISOPROLOL FUMARATE [Concomitant]
     Route: 065
  3. ARIXTRA [Suspect]
     Route: 065
     Dates: start: 20110125, end: 20110127
  4. PREVISCAN [Concomitant]
     Route: 065
  5. OMEPRAZOLE [Concomitant]
     Route: 065
  6. EUPRESSYL [Concomitant]
     Route: 065

REACTIONS (2)
  - MUSCLE HAEMORRHAGE [None]
  - SCIATICA [None]
